FAERS Safety Report 7807512-9 (Version None)
Quarter: 2011Q4

REPORT INFORMATION
  Report Type: 
  Country: None (occurrence: None)
  Receive Date: 20111011
  Receipt Date: 20111005
  Transmission Date: 20120403
  Serious: Yes (Hospitalization)
  Sender: FDA-Public Use
  Company Number: US-GLAXOSMITHKLINE-A0879592A

PATIENT
  Age: 71 Year
  Sex: Male
  Weight: 109.1 kg

DRUGS (3)
  1. AVANDIA [Suspect]
     Indication: TYPE 2 DIABETES MELLITUS
     Dosage: 4MG PER DAY
     Route: 048
     Dates: start: 20050101, end: 20060619
  2. VERAPAMIL [Concomitant]
  3. HYZAAR [Concomitant]

REACTIONS (6)
  - MYOCARDIAL INFARCTION [None]
  - CARDIAC FAILURE [None]
  - ISCHAEMIC CARDIOMYOPATHY [None]
  - ATRIAL FIBRILLATION [None]
  - CARDIAC FAILURE CONGESTIVE [None]
  - MITRAL VALVE INCOMPETENCE [None]
